FAERS Safety Report 5564689-6 (Version None)
Quarter: 2007Q4

REPORT INFORMATION
  Report Type: 
  Country: None (occurrence: None)
  Receive Date: 20071218
  Receipt Date: 20071206
  Transmission Date: 20080405
  Serious: Yes (Hospitalization, Other)
  Sender: FDA-Public Use
  Company Number: US-AMGEN-QUU255740

PATIENT
  Sex: Male

DRUGS (1)
  1. ENBREL [Suspect]
     Indication: PSORIATIC ARTHROPATHY
     Dates: start: 20041108, end: 20070501

REACTIONS (3)
  - GASTROINTESTINAL HAEMORRHAGE [None]
  - HIP ARTHROPLASTY [None]
  - RENAL IMPAIRMENT [None]
